FAERS Safety Report 14835916 (Version 1)
Quarter: 2018Q2

REPORT INFORMATION
  Report Type: Spontaneous
  Country: FR (occurrence: FR)
  Receive Date: 20180502
  Receipt Date: 20180502
  Transmission Date: 20180711
  Serious: Yes (Other)
  Sender: FDA-Public Use
  Company Number: FR-MERCK KGAA-2046949

PATIENT
  Age: 75 Year
  Sex: Female

DRUGS (1)
  1. NOVOTHYROX [Suspect]
     Active Substance: LEVOTHYROXINE SODIUM
     Indication: PRODUCT USED FOR UNKNOWN INDICATION

REACTIONS (12)
  - Dyspnoea [None]
  - Irritability [None]
  - Loss of personal independence in daily activities [None]
  - Asthenia [None]
  - Hospitalisation [None]
  - Decreased appetite [None]
  - Fatigue [None]
  - Mood swings [None]
  - Anger [None]
  - Psychiatric symptom [None]
  - Alopecia [None]
  - Diabetes mellitus [None]
